FAERS Safety Report 12993751 (Version 1)
Quarter: 2016Q4

REPORT INFORMATION
  Report Type: Spontaneous
  Country: US (occurrence: US)
  Receive Date: 20161201
  Receipt Date: 20161201
  Transmission Date: 20170207
  Serious: Yes (Death)
  Sender: FDA-Public Use
  Company Number: None

PATIENT
  Age: 61 Year
  Sex: Female
  Weight: 70.37 kg

DRUGS (2)
  1. DABRAFENIB [Suspect]
     Active Substance: DABRAFENIB
     Indication: MALIGNANT MELANOMA
     Route: 048
     Dates: start: 20150316, end: 20160812
  2. TRAMETINIB [Suspect]
     Active Substance: TRAMETINIB
     Route: 048
     Dates: start: 20150316, end: 20160812

REACTIONS (9)
  - Eye disorder [None]
  - Asthenia [None]
  - Hypotension [None]
  - Immunosuppression [None]
  - Coagulopathy [None]
  - Multiple organ dysfunction syndrome [None]
  - Abscess [None]
  - Septic shock [None]
  - Adrenal insufficiency [None]

NARRATIVE: CASE EVENT DATE: 20160815
